FAERS Safety Report 20896446 (Version 1)
Quarter: 2022Q2

REPORT INFORMATION
  Report Type: Spontaneous
  Country: RU (occurrence: None)
  Receive Date: 20220531
  Receipt Date: 20220531
  Transmission Date: 20220720
  Serious: Yes (Other)
  Sender: FDA-Public Use
  Company Number: RU-Merck Healthcare KGaA-9325404

PATIENT
  Age: 64 Year
  Sex: Male

DRUGS (1)
  1. BAVENCIO [Suspect]
     Active Substance: AVELUMAB
     Indication: Bladder cancer
     Dates: start: 20211108

REACTIONS (2)
  - Hypothyroidism [Unknown]
  - Condition aggravated [Unknown]
